FAERS Safety Report 5716563-X (Version None)
Quarter: 2008Q2

REPORT INFORMATION
  Report Type: 
  Country: None (occurrence: None)
  Receive Date: 20080424
  Receipt Date: 20080416
  Transmission Date: 20081010
  Serious: Yes (Other)
  Sender: FDA-Public Use
  Company Number: IT-ABBOTT-08P-083-0439676-00

PATIENT
  Sex: Female

DRUGS (3)
  1. DEPAKENE [Suspect]
     Indication: EPILEPSY
     Route: 048
     Dates: start: 20071201
  2. VALPROATE SODIUM [Concomitant]
     Indication: EPILEPSY
     Dates: end: 20071201
  3. VALPROATE SODIUM [Concomitant]

REACTIONS (3)
  - CONVULSION [None]
  - DRUG LEVEL BELOW THERAPEUTIC [None]
  - PHARMACEUTICAL PRODUCT COUNTERFEIT [None]
